FAERS Safety Report 24692880 (Version 1)
Quarter: 2024Q4

REPORT INFORMATION
  Report Type: Report from Study
  Country: JP (occurrence: JP)
  Receive Date: 20241203
  Receipt Date: 20241203
  Transmission Date: 20250115
  Serious: Yes (Hospitalization)
  Sender: ALNYLAM PHARMACEUTICALS
  Company Number: JP-ALNYLAM PHARMACEUTICALS, INC.-ALN-2022-002040

PATIENT

DRUGS (16)
  1. ONPATTRO [Suspect]
     Active Substance: PATISIRAN SODIUM
     Indication: Hereditary neuropathic amyloidosis
     Dosage: 14.4 MILLIGRAM, Q3W
     Route: 041
     Dates: start: 20210617, end: 20220407
  2. TAFAMIDIS MEGLUMINE [Suspect]
     Active Substance: TAFAMIDIS MEGLUMINE
     Indication: Hereditary neuropathic amyloidosis
     Dosage: UNK
     Route: 048
  3. CALONAL [Concomitant]
     Active Substance: ACETAMINOPHEN
     Indication: Prophylaxis
     Dosage: 500 MILLIGRAM, SINGLE
     Route: 065
     Dates: start: 20210617, end: 20220407
  4. POLARAMINE [Concomitant]
     Active Substance: DEXCHLORPHENIRAMINE MALEATE
     Indication: Prophylaxis
     Dosage: 5 MILLIGRAM, SINGLE
     Route: 065
     Dates: start: 20210617, end: 20220407
  5. DEXAMETHASONE SODIUM PHOSPHATE [Concomitant]
     Active Substance: DEXAMETHASONE SODIUM PHOSPHATE
     Indication: Prophylaxis
     Dosage: 13.2 MILLIGRAM, SINGLE
     Route: 065
     Dates: start: 20210617, end: 20220407
  6. DECADRON [Concomitant]
     Active Substance: DEXAMETHASONE
     Indication: Prophylaxis
     Dosage: 13.2 MILLIGRAM, SINGLE
     Route: 065
     Dates: start: 20210617, end: 20220407
  7. GASTER [Concomitant]
     Active Substance: FAMOTIDINE
     Indication: Prophylaxis
     Dosage: 20 MILLIGRAM, SINGLE
     Route: 042
     Dates: start: 20210617, end: 20220407
  8. FAMOTIDINE [Concomitant]
     Active Substance: FAMOTIDINE
     Indication: Prophylaxis
     Dosage: 20 MILLIGRAM, SINGLE
     Route: 042
     Dates: start: 20210617, end: 20220407
  9. SULFAMETHOXAZOLE\TRIMETHOPRIM [Concomitant]
     Active Substance: SULFAMETHOXAZOLE\TRIMETHOPRIM
     Indication: Infection prophylaxis
     Dosage: 1 DOSAGE FORM, QD
     Route: 048
  10. PROGRAF [Concomitant]
     Active Substance: TACROLIMUS
     Indication: Alpha 1 foetoprotein abnormal
     Dosage: 0.5 MILLIGRAM, BID
     Route: 048
  11. MIYA-BM [Concomitant]
     Active Substance: CLOSTRIDIUM BUTYRICUM SPORES STRAIN M-55
     Indication: Hereditary neuropathic amyloidosis
     Dosage: 1 GRAM, QD
     Route: 048
  12. METHYLCOBALAMIN [Concomitant]
     Active Substance: METHYLCOBALAMIN
     Indication: Hereditary neuropathic amyloidosis
     Dosage: 500 MICROGRAM, TID
     Route: 065
  13. URSODIOL [Concomitant]
     Active Substance: URSODIOL
     Indication: Hepatic function abnormal
     Dosage: 100 MILLIGRAM, TID
     Route: 048
  14. SENNOSIDES [Concomitant]
     Active Substance: SENNOSIDES
     Indication: Hereditary neuropathic amyloidosis
     Dosage: 12 MILLIGRAM, PRN (WHEN CONSTIPATED)
     Route: 048
     Dates: start: 20210618, end: 20210729
  15. CIALIS [Concomitant]
     Active Substance: TADALAFIL
     Indication: Hereditary neuropathic amyloidosis
     Dosage: 10 MILLIGRAM, PRN
     Route: 048
     Dates: end: 20210729
  16. VITAMINS [Concomitant]
     Active Substance: VITAMINS
     Indication: Vitamin supplementation
     Dosage: 1 GRAM, BID
     Route: 048
     Dates: start: 20210729

REACTIONS (2)
  - Subarachnoid haemorrhage [Recovered/Resolved]
  - Nausea [Recovered/Resolved]

NARRATIVE: CASE EVENT DATE: 20220101
